FAERS Safety Report 4312062-0 (Version None)
Quarter: 2004Q1

REPORT INFORMATION
  Report Type: 
  Country: None (occurrence: None)
  Receive Date: 20040303
  Receipt Date: 19980619
  Transmission Date: 20041129
  Serious: Yes (Death)
  Sender: FDA-Public Use
  Company Number: CL-199700058

PATIENT
  Age: 38 Year
  Sex: Female

DRUGS (17)
  1. INFLIXIMAB (INFLIXIMAB, RECOMBINANT) LYOPHILIZED POWDER [Suspect]
     Indication: CROHN'S DISEASE
     Dosage: SEE IMAGE
     Route: 042
     Dates: start: 19960906
  2. INFLIXIMAB (INFLIXIMAB, RECOMBINANT) LYOPHILIZED POWDER [Suspect]
     Indication: CROHN'S DISEASE
     Dosage: SEE IMAGE
     Route: 042
     Dates: start: 19960923
  3. INFLIXIMAB (INFLIXIMAB, RECOMBINANT) LYOPHILIZED POWDER [Suspect]
     Indication: CROHN'S DISEASE
     Dosage: SEE IMAGE
     Route: 042
     Dates: start: 19961021
  4. INFLIXIMAB (INFLIXIMAB, RECOMBINANT) LYOPHILIZED POWDER [Suspect]
     Indication: CROHN'S DISEASE
     Dosage: SEE IMAGE
     Route: 042
     Dates: start: 20000526
  5. INFLIXIMAB (INFLIXIMAB, RECOMBINANT) LYOPHILIZED POWDER [Suspect]
     Indication: CROHN'S DISEASE
     Dosage: SEE IMAGE
     Route: 042
     Dates: start: 20000711
  6. INFLIXIMAB (INFLIXIMAB, RECOMBINANT) LYOPHILIZED POWDER [Suspect]
     Indication: CROHN'S DISEASE
     Dosage: SEE IMAGE
     Route: 042
     Dates: start: 20000822
  7. AZATHIOPRINE [Concomitant]
  8. BECLOMETHASONE (BECLOMETASONE) [Concomitant]
  9. PREDNISOLONE [Concomitant]
  10. 5-ASA (MESALAZINE) [Concomitant]
  11. PENTASA [Concomitant]
  12. VITAMIN D [Concomitant]
  13. CALCIUM (CALCIUM) [Concomitant]
  14. NEUROBION (NEUROBION FOR INJECTION) [Concomitant]
  15. FOLICUM (FOLIC ACID) [Concomitant]
  16. FERROUS FUMARATE [Concomitant]
  17. METAMUCIL-2 [Concomitant]

REACTIONS (8)
  - ANAL CANCER [None]
  - GALLBLADDER DISORDER [None]
  - LIVER ABSCESS [None]
  - MALNUTRITION [None]
  - PLEURAL EFFUSION [None]
  - POST PROCEDURAL COMPLICATION [None]
  - PYREXIA [None]
  - SQUAMOUS CELL CARCINOMA [None]
